FAERS Safety Report 5418822-7 (Version None)
Quarter: 2007Q3

REPORT INFORMATION
  Report Type: 
  Country: None (occurrence: None)
  Receive Date: 20070718
  Receipt Date: 20060712
  Transmission Date: 20080115
  Serious: Yes (Hospitalization, Other)
  Sender: FDA-Public Use
  Company Number: 2006089198

PATIENT
  Sex: Female

DRUGS (3)
  1. CELEBREX [Suspect]
     Indication: ARTHRALGIA
     Dosage: 200 MG (200 MG, 1 IN 1 D)
     Dates: start: 20060401
  2. ARICEPT [Suspect]
     Indication: DRUG USE FOR UNKNOWN INDICATION
     Dosage: 10 MG
  3. WARFARIN SODIUM [Concomitant]

REACTIONS (4)
  - DEVICE RELATED INFECTION [None]
  - MIGRAINE [None]
  - OSTEOARTHRITIS [None]
  - STAPHYLOCOCCAL INFECTION [None]
